FAERS Safety Report 6729622-X (Version None)
Quarter: 2010Q2

REPORT INFORMATION
  Report Type: 
  Country: None (occurrence: None)
  Receive Date: 20100512
  Receipt Date: 20090916
  Transmission Date: 20101027
  Serious: Yes (Disabling)
  Sender: FDA-Public Use
  Company Number: CTI_01141_2010

PATIENT
  Sex: Female

DRUGS (1)
  1. FACTIVE [Suspect]
     Indication: DRUG USE FOR UNKNOWN INDICATION
     Dosage: (DF)
     Dates: start: 20090101, end: 20090101

REACTIONS (2)
  - PRURITUS GENERALISED [None]
  - URTICARIA [None]
